FAERS Safety Report 4315540-3 (Version None)
Quarter: 2004Q1

REPORT INFORMATION
  Report Type: 
  Country: None (occurrence: None)
  Receive Date: 20040311
  Receipt Date: 20040129
  Transmission Date: 20041129
  Serious: Yes (Hospitalization)
  Sender: FDA-Public Use
  Company Number: AU-ROCHE-357495

PATIENT
  Age: 72 Year
  Sex: Male
  Weight: 84.7 kg

DRUGS (9)
  1. CAPECITABINE [Suspect]
     Dosage: NTERMITTENT THERAPY OF 14 DAYS TREATMENT, FOLLOWED BY 7 DAYS REST.
     Route: 048
     Dates: start: 20040108, end: 20040220
  2. OXALIPLATIN [Suspect]
     Dosage: DAY 1 OF EVERY 3 WEEK CYCLE.
     Route: 042
     Dates: start: 20040108, end: 20040128
  3. GENTAMICIN [Suspect]
     Indication: COLITIS
     Route: 042
     Dates: start: 20040206, end: 20040212
  4. CONTRAST MEDIUM [Suspect]
     Route: 042
     Dates: start: 20040205
  5. CANDESARTAN/HYDROCHLOROTHIAZIDE [Concomitant]
     Dates: end: 20040220
  6. AMOXICILLIN [Concomitant]
  7. DEXAMETHASONE [Concomitant]
     Dates: start: 20040128, end: 20040130
  8. TROPISETRON [Concomitant]
     Dates: start: 20040128, end: 20040214
  9. PANTOPRAZOLE [Concomitant]
     Dates: start: 20040206

REACTIONS (10)
  - BLOOD GLUCOSE INCREASED [None]
  - COLITIS [None]
  - DEHYDRATION [None]
  - HAEMATEMESIS [None]
  - NAUSEA [None]
  - NECK PAIN [None]
  - PULMONARY EMBOLISM [None]
  - RASH [None]
  - RENAL IMPAIRMENT [None]
  - RETCHING [None]
